FAERS Safety Report 19717839 (Version 1)
Quarter: 2021Q3

REPORT INFORMATION
  Report Type: Spontaneous
  Country: US (occurrence: US)
  Receive Date: 20210819
  Receipt Date: 20210819
  Transmission Date: 20211014
  Serious: No
  Sender: FDA-Public Use
  Company Number: US-CELLTRION INC.-2021US006811

PATIENT

DRUGS (3)
  1. TRUXIMA [Suspect]
     Active Substance: RITUXIMAB-ABBS
     Indication: CHRONIC LYMPHOCYTIC LEUKAEMIA
     Dosage: 375 MG/M2, WEEKLY FOR 4 CYCLES (750MG) THEN MONTHLY FOR 6 CYCLES
     Dates: start: 20200728
  2. TRUXIMA [Suspect]
     Active Substance: RITUXIMAB-ABBS
     Dosage: MOST RECENT DAY 6 DOSE ADMINISTERED
     Dates: start: 20210126
  3. VENETOCLAX. [Concomitant]
     Active Substance: VENETOCLAX
     Indication: CHRONIC LYMPHOCYTIC LEUKAEMIA

REACTIONS (1)
  - Product use issue [Unknown]
